FAERS Safety Report 5583004-5 (Version None)
Quarter: 2007Q4

REPORT INFORMATION
  Report Type: 
  Country: None (occurrence: None)
  Receive Date: 20071231
  Receipt Date: 20071219
  Transmission Date: 20080405
  Serious: No
  Sender: FDA-Public Use
  Company Number: 2007-169543-NL

PATIENT
  Age: 25 Year
  Sex: Female

DRUGS (3)
  1. MIRTAZAPINE [Suspect]
     Dosage: 15 MG/225 MG ONCE ORAL
     Route: 048
     Dates: start: 20071020
  2. MIRTAZAPINE [Suspect]
     Dosage: 15 MG/225 MG ONCE ORAL
     Route: 048
     Dates: start: 20070701
  3. OXAZEPAM [Concomitant]

REACTIONS (5)
  - BLOOD COUNT ABNORMAL [None]
  - EAR INFECTION [None]
  - INTENTIONAL OVERDOSE [None]
  - RESPIRATORY TRACT INFECTION [None]
  - SUICIDE ATTEMPT [None]
